FAERS Safety Report 10221664 (Version 2)
Quarter: 2014Q2

REPORT INFORMATION
  Report Type: Report from Study
  Country: US (occurrence: US)
  Receive Date: 20140606
  Receipt Date: 20140619
  Transmission Date: 20141212
  Serious: Yes (Hospitalization, Other)
  Sender: FDA-Public Use
  Company Number: US-ABBVIE-14P-163-1241579-00

PATIENT
  Age: 31 Year
  Sex: Female
  Weight: 65.38 kg

DRUGS (3)
  1. HUMIRA [Suspect]
     Indication: CROHN^S DISEASE
     Dates: start: 20140313
  2. HUMIRA [Suspect]
  3. FLINTSTONES MULTIPLE VITAMINS [Concomitant]
     Indication: PRODUCT USED FOR UNKNOWN INDICATION

REACTIONS (9)
  - Small intestinal obstruction [Not Recovered/Not Resolved]
  - Dehydration [Recovered/Resolved]
  - Rash macular [Unknown]
  - Vomiting [Unknown]
  - Hypophagia [Unknown]
  - Fluid intake reduced [Unknown]
  - Unevaluable event [Unknown]
  - Unevaluable event [Unknown]
  - Drug ineffective [Unknown]
